FAERS Safety Report 16514608 (Version 1)
Quarter: 2019Q3

REPORT INFORMATION
  Report Type: Report from Study
  Country: IT (occurrence: IT)
  Receive Date: 20190702
  Receipt Date: 20190702
  Transmission Date: 20191004
  Serious: Yes (Death)
  Sender: FDA-Public Use
  Company Number: IT-PFIZER INC-2019274293

PATIENT

DRUGS (3)
  1. LEUCOVORIN [CALCIUM FOLINATE] [Concomitant]
     Active Substance: LEUCOVORIN
     Indication: COLON CANCER
     Dosage: 15 MG, 4X/DAY (6 DOSES) (RESCUE)
     Route: 048
  2. FLUOROURACIL. [Suspect]
     Active Substance: FLUOROURACIL
     Indication: COLON CANCER
     Dosage: 600 MG/M2, CYCLIC  (ON DAYS 2 AND 16)
     Route: 042
  3. METHOTREXATE SODIUM. [Suspect]
     Active Substance: METHOTREXATE SODIUM
     Indication: COLON CANCER
     Dosage: 200 MG/M2, CYCLIC (6 MONTHLY CYCLES) (DAYS 1 AND 15)
     Route: 042

REACTIONS (3)
  - Sepsis [Fatal]
  - Diarrhoea [Fatal]
  - Dehydration [Fatal]
